FAERS Safety Report 10114535 (Version 1)
Quarter: 2014Q2

REPORT INFORMATION
  Report Type: Spontaneous
  Country: US (occurrence: US)
  Receive Date: 20140426
  Receipt Date: 20140426
  Transmission Date: 20141212
  Serious: No
  Sender: FDA-Public Use
  Company Number: US-009507513-1404USA012964

PATIENT
  Sex: Male

DRUGS (1)
  1. INTRONA [Suspect]
     Indication: MALIGNANT MELANOMA
     Dosage: INJECTING 27 MILLION IU OFINTRON A FROM THE 18 MILLION IU MULTIDOSE VIAL OFINTRON A
     Route: 058
     Dates: start: 2014

REACTIONS (3)
  - Anxiety [Not Recovered/Not Resolved]
  - Injection site pain [Not Recovered/Not Resolved]
  - Injection site pain [Not Recovered/Not Resolved]
